FAERS Safety Report 17403217 (Version 1)
Quarter: 2020Q1

REPORT INFORMATION
  Report Type: Spontaneous
  Country: US (occurrence: US)
  Receive Date: 20200211
  Receipt Date: 20200211
  Transmission Date: 20200409
  Serious: Yes (Other)
  Sender: FDA-Public Use
  Company Number: US-PFIZER INC-2020057326

PATIENT
  Age: 7 Decade
  Sex: Female
  Weight: 61.69 kg

DRUGS (1)
  1. ESTRING [Suspect]
     Active Substance: ESTRADIOL
     Indication: VULVOVAGINAL DRYNESS
     Dosage: 2 MG, INSERTED EVERY 3 MONTHS
     Route: 067
     Dates: start: 1990

REACTIONS (2)
  - Incorrect product administration duration [Not Recovered/Not Resolved]
  - Tremor [Not Recovered/Not Resolved]
